FAERS Safety Report 7212257-2 (Version None)
Quarter: 2011Q1

REPORT INFORMATION
  Report Type: 
  Country: None (occurrence: None)
  Receive Date: 20110106
  Receipt Date: 20101230
  Transmission Date: 20110831
  Serious: Yes (Hospitalization, Other)
  Sender: FDA-Public Use
  Company Number: CA-JNJFOC-20101208350

PATIENT
  Age: 35 Year
  Sex: Male
  Weight: 113.76 kg

DRUGS (1)
  1. RISPERIDONE [Suspect]
     Indication: SCHIZOPHRENIA
     Route: 065

REACTIONS (4)
  - ASTHENIA [None]
  - VENTRICULAR TACHYCARDIA [None]
  - SYNCOPE [None]
  - DIZZINESS [None]
